FAERS Safety Report 7866066-1 (Version None)
Quarter: 2011Q4

REPORT INFORMATION
  Report Type: 
  Country: None (occurrence: None)
  Receive Date: 20111028
  Receipt Date: 20110418
  Transmission Date: 20120403
  Serious: No
  Sender: FDA-Public Use
  Company Number: US-GLAXOSMITHKLINE-A0923357A

PATIENT
  Age: 25 Year
  Sex: Female

DRUGS (11)
  1. ADVAIR DISKUS 100/50 [Suspect]
     Indication: ASTHMA
     Dosage: 1PUFF TWICE PER DAY
     Route: 055
     Dates: start: 20110411
  2. UNKNOWN MEDICATION [Concomitant]
  3. ALBUTEROL [Concomitant]
  4. TRAZODONE HYDROCHLORIDE [Concomitant]
  5. ABILIFY [Concomitant]
  6. ENABLEX [Concomitant]
  7. DEXLANSOPRAZOLE [Concomitant]
  8. PRAZOSIN HCL [Concomitant]
  9. BUSPAR [Concomitant]
  10. ZOLOFT [Concomitant]
  11. KLONOPIN [Concomitant]

REACTIONS (1)
  - URTICARIA [None]
